FAERS Safety Report 25303799 (Version 1)
Quarter: 2025Q2

REPORT INFORMATION
  Report Type: Report from Study
  Country: PK (occurrence: PK)
  Receive Date: 20250513
  Receipt Date: 20250513
  Transmission Date: 20250717
  Serious: Yes (Other)
  Sender: ROCHE
  Company Number: PK-ROCHE-10000279988

PATIENT
  Age: 31 Year
  Sex: Male

DRUGS (2)
  1. POLIVY [Suspect]
     Active Substance: POLATUZUMAB VEDOTIN-PIIQ
     Indication: Diffuse large B-cell lymphoma refractory
     Route: 042
     Dates: start: 20250429
  2. RITUXIMAB [Suspect]
     Active Substance: RITUXIMAB
     Indication: Diffuse large B-cell lymphoma refractory
     Route: 042

REACTIONS (1)
  - Diffuse large B-cell lymphoma recurrent [Unknown]

NARRATIVE: CASE EVENT DATE: 20250508
